FAERS Safety Report 15575703 (Version 7)
Quarter: 2020Q3

REPORT INFORMATION
  Report Type: Report from Study
  Country: US (occurrence: US)
  Receive Date: 20181101
  Receipt Date: 20191216
  Transmission Date: 20201105
  Serious: Yes (Hospitalization)
  Sender: FDA-Public Use
  Company Number: US-PFIZER INC-2018443216

PATIENT
  Age: 79 Year
  Sex: Male
  Weight: 100.68 kg

DRUGS (14)
  1. TALAZOPARIB. [Suspect]
     Active Substance: TALAZOPARIB
     Dosage: 0.5 MG, (TAKE 2 X 0.25 MG) DAILY
     Route: 048
     Dates: start: 20180503
  2. SOTALOL. [Concomitant]
     Active Substance: SOTALOL
     Indication: ATRIAL FIBRILLATION
     Dosage: 120 MG, 2X/DAY (BID)
     Route: 048
     Dates: start: 201803
  3. CALCIUM + D3 [CALCIUM;COLECALCIFEROL] [Concomitant]
     Indication: NUTRITIONAL SUPPLEMENTATION
     Dosage: 1 TABLET, 2X/DAY (BID)
     Route: 048
     Dates: start: 20171116
  4. TYLENOL [Concomitant]
     Active Substance: ACETAMINOPHEN
     Indication: BACK PAIN
     Dosage: 500 MG, AS NEEDED (PRN)
     Route: 048
     Dates: start: 2000
  5. OXYBUTYNIN. [Concomitant]
     Active Substance: OXYBUTYNIN CHLORIDE
     Indication: NOCTURIA
     Dosage: 10 MG, 1X/DAY (QD)
     Route: 048
     Dates: start: 20171116
  6. METOPROLOL. [Concomitant]
     Active Substance: METOPROLOL
     Indication: HYPERTENSION
     Dosage: 25 MG, 1X/DAY(QD)
     Route: 048
     Dates: start: 20180313
  7. TALAZOPARIB. [Suspect]
     Active Substance: TALAZOPARIB
     Indication: HORMONE-REFRACTORY PROSTATE CANCER
     Dosage: 1.0 MG, 1X/DAY(QD)
     Route: 048
     Dates: start: 20180406, end: 20180502
  8. PRILOSEC [Concomitant]
     Active Substance: OMEPRAZOLE MAGNESIUM
     Indication: DYSPEPSIA
     Dosage: 20 MG, 1X/DAY(QD)
     Route: 048
     Dates: start: 20180410
  9. VITAMIN B COMPLEX [Concomitant]
     Active Substance: CYANOCOBALAMIN\DEXPANTHENOL\NIACINAMIDE\PYRIDOXINE HYDROCHLORIDE\RIBOFLAVIN 5^-PHOSPHATE SODIUM\THIAMINE HYDROCHLORIDE\VITAMIN B COMPLEX
     Indication: NUTRITIONAL SUPPLEMENTATION
     Dosage: ONCE A MONTH
     Dates: start: 201706
  10. TYLENOL [Concomitant]
     Active Substance: ACETAMINOPHEN
     Indication: OSTEOARTHRITIS
  11. ENZALUTAMIDE [Suspect]
     Active Substance: ENZALUTAMIDE
     Indication: HORMONE-REFRACTORY PROSTATE CANCER
     Dosage: 160 MG, TAKE 4 CAPSULES QD
     Route: 048
     Dates: start: 20180406
  12. VITAMIN A [RETINOL] [Concomitant]
     Active Substance: RETINOL
     Indication: NUTRITIONAL SUPPLEMENTATION
     Dosage: 1 TABLET, 1X/DAY (QD)
     Route: 048
     Dates: start: 20171116
  13. IBUPROFEN. [Concomitant]
     Active Substance: IBUPROFEN
     Indication: PELVIC PAIN
     Dosage: 200 MG, AS NEEDED (PRN)
     Route: 048
     Dates: start: 20180409
  14. MUCINEX DM [Concomitant]
     Active Substance: DEXTROMETHORPHAN HYDROBROMIDE\GUAIFENESIN
     Indication: ALLERGIC SINUSITIS
     Dosage: 1 DF, 2X/DAY (BID)
     Route: 048
     Dates: start: 20180402

REACTIONS (1)
  - Diverticulitis [Recovered/Resolved]

NARRATIVE: CASE EVENT DATE: 20181024
